FAERS Safety Report 6637901-X (Version None)
Quarter: 2010Q1

REPORT INFORMATION
  Report Type: 
  Country: None (occurrence: None)
  Receive Date: 20100315
  Receipt Date: 20100315
  Transmission Date: 20100710
  Serious: Yes (Hospitalization)
  Sender: FDA-Public Use
  Company Number: None

PATIENT
  Sex: Male
  Weight: 3.76 kg

DRUGS (1)
  1. SYNAGIS [Suspect]

REACTIONS (3)
  - BRONCHITIS [None]
  - INFLUENZA [None]
  - RESPIRATORY SYNCYTIAL VIRUS INFECTION [None]
